FAERS Safety Report 10910669 (Version 1)
Quarter: 2015Q1

REPORT INFORMATION
  Report Type: Spontaneous
  Country: US (occurrence: US)
  Receive Date: 20150312
  Receipt Date: 20150312
  Transmission Date: 20150721
  Serious: No
  Sender: FDA-Public Use
  Company Number: US-SA-2015SA009091

PATIENT

DRUGS (4)
  1. NASACORT ALLERGY 24HR [Suspect]
     Active Substance: TRIAMCINOLONE ACETONIDE
     Indication: SNEEZING
     Route: 065
     Dates: start: 20150120
  2. NASACORT ALLERGY 24HR [Suspect]
     Active Substance: TRIAMCINOLONE ACETONIDE
     Indication: LACRIMATION INCREASED
     Route: 065
     Dates: start: 20150120
  3. NASACORT ALLERGY 24HR [Suspect]
     Active Substance: TRIAMCINOLONE ACETONIDE
     Indication: NASAL PRURITUS
     Route: 065
     Dates: start: 20150120
  4. NASACORT ALLERGY 24HR [Suspect]
     Active Substance: TRIAMCINOLONE ACETONIDE
     Indication: EAR CONGESTION
     Route: 065
     Dates: start: 20150120

REACTIONS (4)
  - Oropharyngeal pain [Unknown]
  - Nasal congestion [Unknown]
  - Swelling face [Unknown]
  - Dysphonia [Unknown]

NARRATIVE: CASE EVENT DATE: 20150121
